FAERS Safety Report 8433372-1 (Version None)
Quarter: 2012Q2

REPORT INFORMATION
  Report Type: 
  Country: None (occurrence: None)
  Receive Date: 20120613
  Receipt Date: 20120608
  Transmission Date: 20120825
  Serious: Yes (Hospitalization, Disabling)
  Sender: FDA-Public Use
  Company Number: US-MERCK-1103USA00954

PATIENT
  Age: 67 Year
  Sex: Female

DRUGS (17)
  1. FOSAMAX [Suspect]
     Indication: OSTEOPOROSIS
     Route: 048
     Dates: start: 20000802, end: 20031230
  2. VITAMIN B (UNSPECIFIED) [Concomitant]
     Route: 065
     Dates: start: 20000101
  3. FOSAMAX [Suspect]
     Indication: OSTEOPENIA
     Route: 048
     Dates: start: 20000802, end: 20031230
  4. ALENDRONATE SODIUM [Suspect]
     Indication: OSTEOPOROSIS
     Route: 048
     Dates: start: 20080714, end: 20100809
  5. MAXALT [Concomitant]
     Route: 065
  6. POTASSIUM GLUCONATE [Concomitant]
     Route: 065
     Dates: start: 20000101
  7. VITAMIN E [Concomitant]
     Route: 065
     Dates: start: 20000101
  8. OMEGA-3 MARINE TRIGLYCERIDES [Concomitant]
     Route: 065
     Dates: start: 20000101
  9. LECITHIN [Concomitant]
     Route: 065
     Dates: start: 20000101
  10. VITAMIN D (UNSPECIFIED) [Concomitant]
     Route: 065
     Dates: start: 20000101
  11. SELENIUM (UNSPECIFIED) [Concomitant]
     Route: 065
     Dates: start: 20000101
  12. CALCIUM MAGNESIUM ZINC [Concomitant]
     Route: 065
     Dates: start: 20000101
  13. FOSAMAX [Suspect]
     Route: 048
     Dates: start: 20031230, end: 20080714
  14. SUMATRIPTAN SUCCINATE (IMITREX) [Concomitant]
     Route: 065
  15. FOSAMAX [Suspect]
     Route: 048
     Dates: start: 20031230, end: 20080714
  16. ASCORBIC ACID [Concomitant]
     Route: 065
     Dates: start: 20000101
  17. VITAMINS (UNSPECIFIED) [Concomitant]
     Route: 065
     Dates: start: 20000101

REACTIONS (4)
  - OSTEOPOROSIS [None]
  - STRESS FRACTURE [None]
  - LOW TURNOVER OSTEOPATHY [None]
  - FEMUR FRACTURE [None]
